FAERS Safety Report 10923379 (Version 1)
Quarter: 2015Q1

REPORT INFORMATION
  Report Type: Spontaneous
  Country: GB (occurrence: GB)
  Receive Date: 20150318
  Receipt Date: 20150318
  Transmission Date: 20150721
  Serious: Yes (Other)
  Sender: FDA-Public Use
  Company Number: GB-AUROBINDO-AUR-APL-2015-02144

PATIENT
  Age: 43 Year
  Sex: Male

DRUGS (1)
  1. PAROXETINE [Suspect]
     Active Substance: PAROXETINE\PAROXETINE HYDROCHLORIDE
     Indication: PRODUCT USED FOR UNKNOWN INDICATION
     Dosage: 30 MG, UNK
     Route: 065

REACTIONS (8)
  - Abnormal behaviour [Unknown]
  - Emotional poverty [Unknown]
  - Job dissatisfaction [Unknown]
  - Alcoholic [Unknown]
  - Decreased interest [Unknown]
  - Blunted affect [Unknown]
  - Apathy [Unknown]
  - Social problem [Unknown]
